FAERS Safety Report 6448777-8 (Version None)
Quarter: 2009Q4

REPORT INFORMATION
  Report Type: 
  Country: None (occurrence: None)
  Receive Date: 20091120
  Receipt Date: 20091109
  Transmission Date: 20100525
  Serious: Yes (Hospitalization)
  Sender: FDA-Public Use
  Company Number: JP-SANOFI-AVENTIS-A01200910338

PATIENT
  Age: 62 Year
  Sex: Female

DRUGS (10)
  1. ZOLPIDEM TARTRATE [Suspect]
     Route: 048
     Dates: start: 20070106, end: 20070107
  2. DEPAS [Suspect]
     Indication: ANXIETY
     Route: 048
     Dates: start: 20061104, end: 20061230
  3. DEPAS [Suspect]
     Route: 048
     Dates: start: 20061104, end: 20061230
  4. LENDORMIN [Suspect]
     Route: 048
     Dates: start: 20061223, end: 20061230
  5. RESLIN [Suspect]
     Route: 048
     Dates: start: 20061222, end: 20070109
  6. RESLIN [Suspect]
     Indication: ADJUSTMENT DISORDER
     Route: 048
     Dates: start: 20061222, end: 20070109
  7. RESLIN [Suspect]
     Indication: ANXIETY
     Route: 048
     Dates: start: 20061222, end: 20070109
  8. QUAZEPAM [Concomitant]
     Indication: DRUG USE FOR UNKNOWN INDICATION
     Route: 065
  9. FENTANYL-100 [Concomitant]
     Indication: PAIN
     Route: 062
     Dates: start: 20061117
  10. ZOPICLONE [Concomitant]
     Indication: DRUG USE FOR UNKNOWN INDICATION
     Route: 065

REACTIONS (1)
  - DELIRIUM [None]
